FAERS Safety Report 9144106 (Version 1)
Quarter: 2013Q1

REPORT INFORMATION
  Report Type: Spontaneous
  Country: US (occurrence: US)
  Receive Date: 20130306
  Receipt Date: 20130306
  Transmission Date: 20140127
  Serious: Yes (Other)
  Sender: FDA-Public Use
  Company Number: US-ROCHE-1074704

PATIENT
  Sex: Female
  Weight: 61.29 kg

DRUGS (9)
  1. PEGASYS [Suspect]
     Indication: CHRONIC HEPATITIS C
     Route: 058
     Dates: start: 20120224, end: 20120514
  2. PEGASYS [Suspect]
     Route: 065
  3. TELAPREVIR [Suspect]
     Indication: CHRONIC HEPATITIS C
     Route: 065
     Dates: start: 20120224, end: 20120514
  4. RIBAVIRIN [Suspect]
     Indication: CHRONIC HEPATITIS C
     Route: 048
     Dates: start: 20120224, end: 20120514
  5. RIBAVIRIN [Suspect]
     Dosage: DOSE REDUCED (400/200)
     Route: 065
  6. ZOLOFT [Concomitant]
     Indication: NERVOUSNESS
  7. ZOLOFT [Concomitant]
     Indication: ANXIETY
  8. XANAX [Concomitant]
     Indication: NERVOUSNESS
  9. XANAX [Concomitant]
     Indication: ANXIETY

REACTIONS (37)
  - Blood count abnormal [Unknown]
  - Nervousness [Unknown]
  - Anxiety [Unknown]
  - Disturbance in attention [Unknown]
  - Insomnia [Unknown]
  - Feeling abnormal [Unknown]
  - Tremor [Unknown]
  - Dyskinesia [Unknown]
  - Platelet count decreased [Unknown]
  - Activities of daily living impaired [Unknown]
  - Impaired driving ability [Unknown]
  - Eye irritation [Unknown]
  - Confusional state [Unknown]
  - Emotional disorder [Unknown]
  - Contusion [Unknown]
  - Feeling abnormal [Unknown]
  - Amnesia [Unknown]
  - Anaemia [Unknown]
  - Blood count abnormal [Not Recovered/Not Resolved]
  - Dizziness [Unknown]
  - Fear of death [Unknown]
  - Visual acuity reduced [Unknown]
  - Ocular hyperaemia [Unknown]
  - Eye irritation [Unknown]
  - Weight decreased [Unknown]
  - Decreased appetite [Recovering/Resolving]
  - Diarrhoea [Not Recovered/Not Resolved]
  - Faecal incontinence [Unknown]
  - Depression [Unknown]
  - Fatigue [Unknown]
  - Vision blurred [Unknown]
  - Eye irritation [Unknown]
  - Dry eye [Unknown]
  - Fatigue [Unknown]
  - Fatigue [Unknown]
  - Abdominal distension [Unknown]
  - Abdominal discomfort [Unknown]
